FAERS Safety Report 7726775-1 (Version None)
Quarter: 2011Q3

REPORT INFORMATION
  Report Type: 
  Country: None (occurrence: None)
  Receive Date: 20110902
  Receipt Date: 20110627
  Transmission Date: 20111222
  Serious: Yes (Other)
  Sender: FDA-Public Use
  Company Number: US-GLAXOSMITHKLINE-A0933246A

PATIENT
  Age: 66 Year
  Sex: Female

DRUGS (12)
  1. MECLIZINE [Concomitant]
  2. POTASSIUM [Concomitant]
  3. IBUPROFEN [Concomitant]
  4. PROMACTA [Suspect]
     Indication: COAGULOPATHY
     Dosage: 50MG PER DAY
     Route: 048
     Dates: start: 20090101
  5. EXFORGE [Concomitant]
  6. METFORMIN HCL [Concomitant]
  7. BLOOD PRESSURE MEDICATION [Concomitant]
  8. GABAPENTIN [Concomitant]
  9. EXFORGE [Suspect]
     Indication: PRODUCT USED FOR UNKNOWN INDICATION
     Dosage: 1TAB PER DAY
     Route: 048
  10. METOPROLOL [Concomitant]
  11. GABAPENTIN [Suspect]
     Indication: SLEEP DISORDER THERAPY
     Dosage: 1CAP AT NIGHT
     Route: 048
  12. FUROSEMIDE [Concomitant]

REACTIONS (7)
  - MALAISE [None]
  - TREMOR [None]
  - SWELLING [None]
  - LIVER DISORDER [None]
  - FALL [None]
  - FLUID RETENTION [None]
  - PAIN IN EXTREMITY [None]
